FAERS Safety Report 6720447-8 (Version None)
Quarter: 2010Q2

REPORT INFORMATION
  Report Type: 
  Country: None (occurrence: None)
  Receive Date: 20100511
  Receipt Date: 20100428
  Transmission Date: 20101027
  Serious: Yes (Hospitalization)
  Sender: FDA-Public Use
  Company Number: TR-ELI_LILLY_AND_COMPANY-TR201004004488

PATIENT
  Sex: Male
  Weight: 71 kg

DRUGS (9)
  1. PEMETREXED [Suspect]
     Indication: NON-SMALL CELL LUNG CANCER
     Dosage: 500 MG/M2, DAY 1 EVERY 21 DAYS
     Route: 042
     Dates: start: 20100315
  2. PEMETREXED [Suspect]
     Dosage: UNK, UNK
  3. CISPLATIN [Suspect]
     Indication: NON-SMALL CELL LUNG CANCER
     Dosage: 75 MG/M2, DAY1 EVERY 21 DAYS
     Route: 042
     Dates: start: 20100315
  4. CISPLATIN [Suspect]
     Dosage: UNK, UNK
  5. FOLIC ACID [Concomitant]
     Indication: PROPHYLAXIS
     Dates: start: 20100308
  6. VIT B12 [Concomitant]
     Indication: PROPHYLAXIS
     Dates: start: 20100308, end: 20100401
  7. DEXAMETHASONE [Concomitant]
     Indication: PROPHYLAXIS
     Dates: start: 20100314, end: 20100408
  8. COVERSYL /00790701/ [Concomitant]
     Indication: HYPERTENSION
     Dates: start: 19800101
  9. NORVASC [Concomitant]
     Indication: HYPERTENSION
     Dates: start: 19800101

REACTIONS (1)
  - ARTERIAL THROMBOSIS [None]
